FAERS Safety Report 17730822 (Version 1)
Quarter: 2020Q2

REPORT INFORMATION
  Report Type: Spontaneous
  Country: US (occurrence: US)
  Receive Date: 20200430
  Receipt Date: 20200430
  Transmission Date: 20200714
  Serious: No
  Sender: FDA-Public Use
  Company Number: US-DSJP-DSU-2020-112072

PATIENT

DRUGS (5)
  1. OLMETEC OD [Suspect]
     Active Substance: OLMESARTAN MEDOXOMIL
     Indication: HYPERTENSION
     Dosage: ONE TABLET, BID
     Route: 048
  2. OLMESARTAN AG [Suspect]
     Active Substance: OLMESARTAN MEDOXOMIL
     Indication: HYPERTENSION
     Dosage: ONE TABLET, BID
     Route: 048
  3. CARVEDILOL. [Concomitant]
     Active Substance: CARVEDILOL
     Indication: HYPERTENSION
     Route: 048
  4. BENICAR [Suspect]
     Active Substance: OLMESARTAN MEDOXOMIL
     Indication: HYPERTENSION
     Dosage: ONE TABLET A DAY
     Route: 048
     Dates: start: 2010
  5. BENICAR [Suspect]
     Active Substance: OLMESARTAN MEDOXOMIL
     Dosage: ONE TABLET BID
     Route: 048
     Dates: start: 202001

REACTIONS (2)
  - Blood pressure increased [Recovered/Resolved]
  - Off label use [Not Recovered/Not Resolved]
